FAERS Safety Report 15750413 (Version 2)
Quarter: 2019Q2

REPORT INFORMATION
  Report Type: Spontaneous
  Country: GB (occurrence: GB)
  Receive Date: 20181221
  Receipt Date: 20190510
  Transmission Date: 20190711
  Serious: Yes (Other)
  Sender: FDA-Public Use
  Company Number: GB-MYLANLABS-2018M1094989

PATIENT
  Age: 13 Year
  Sex: Female

DRUGS (1)
  1. CYSTAGON [Suspect]
     Active Substance: CYSTEAMINE BITARTRATE
     Indication: CYSTINOSIS
     Dosage: UNK
     Route: 048
     Dates: start: 200611

REACTIONS (3)
  - End stage renal disease [Unknown]
  - Treatment noncompliance [Recovered/Resolved]
  - Transplant failure [Recovered/Resolved]

NARRATIVE: CASE EVENT DATE: 201610
